FAERS Safety Report 5131254-4 (Version None)
Quarter: 2006Q4

REPORT INFORMATION
  Report Type: 
  Country: None (occurrence: None)
  Receive Date: 20061020
  Receipt Date: 20061011
  Transmission Date: 20070319
  Serious: Yes (Hospitalization)
  Sender: FDA-Public Use
  Company Number: 2006AP04799

PATIENT
  Age: 62 Year
  Sex: Male

DRUGS (6)
  1. CASODEX [Suspect]
     Indication: PROSTATE CANCER
     Route: 048
     Dates: start: 20060829, end: 20060930
  2. ZOLADEX [Suspect]
     Indication: PROSTATE CANCER
     Route: 058
     Dates: start: 20060904
  3. URIEF [Concomitant]
     Route: 048
     Dates: start: 20060101
  4. LOXONIN [Concomitant]
     Route: 048
     Dates: start: 20060101
  5. LEVOFLOXACIN [Concomitant]
     Route: 048
     Dates: start: 20060823, end: 20060824
  6. SELBEX [Concomitant]
     Dates: start: 20060823, end: 20060824

REACTIONS (5)
  - BLOOD ALKALINE PHOSPHATASE INCREASED [None]
  - BLOOD BILIRUBIN INCREASED [None]
  - BONE PAIN [None]
  - GAMMA-GLUTAMYLTRANSFERASE INCREASED [None]
  - TRANSAMINASES INCREASED [None]
